FAERS Safety Report 16245211 (Version 1)
Quarter: 2019Q2

REPORT INFORMATION
  Report Type: Spontaneous
  Country: FR (occurrence: FR)
  Receive Date: 20190426
  Receipt Date: 20190426
  Transmission Date: 20190711
  Serious: Yes (Other)
  Sender: FDA-Public Use
  Company Number: FR-MYLANLABS-2019M1038600

PATIENT
  Age: 69 Year
  Sex: Male

DRUGS (11)
  1. QUESTRAN [Concomitant]
     Active Substance: CHOLESTYRAMINE
     Dosage: 2 DOSAGE FORM, QD
     Route: 048
     Dates: start: 20181107, end: 20181109
  2. ATORVASTATINE ARROW [Concomitant]
     Active Substance: ATORVASTATIN
     Dosage: 1 DOSAGE FORM, QD
     Route: 048
     Dates: start: 20181107, end: 20181108
  3. RAMIPRIL MYLAN 5 MG, COMPRIM? S?CABLE [Suspect]
     Active Substance: RAMIPRIL
     Indication: HYPERTENSION
     Dosage: 1 DOSAGE FORM, QD
     Route: 048
     Dates: start: 20181108, end: 20181109
  4. DOLIPRANE [Suspect]
     Active Substance: ACETAMINOPHEN
     Indication: PRODUCT USED FOR UNKNOWN INDICATION
     Dosage: 2 GRAM, QD
     Route: 048
     Dates: start: 20181107, end: 20181109
  5. PRINCI B                           /01262901/ [Concomitant]
     Active Substance: PYRIDOXINE\THIAMINE
     Dosage: 1 DOSAGE FORM, QD
     Route: 048
     Dates: start: 20181109, end: 20181109
  6. GLIMEPIRIDE ARROW [Concomitant]
     Dosage: 1 DOSAGE FORM, QD
     Route: 048
     Dates: start: 20181108, end: 20181108
  7. ESIDREX [Concomitant]
     Active Substance: HYDROCHLOROTHIAZIDE
     Dosage: 1 DOSAGE FORM, QD
     Route: 048
     Dates: start: 20181108, end: 20181108
  8. AMLODIPINE [Concomitant]
     Active Substance: AMLODIPINE BESYLATE
     Dosage: 1 DOSAGE FORM, QD
     Route: 048
     Dates: start: 20181108, end: 20181108
  9. PAROXETINE. [Concomitant]
     Active Substance: PAROXETINE
     Dosage: 10 MILLIGRAM, QD
     Route: 048
     Dates: start: 20181108, end: 20181108
  10. VASTAREL [Concomitant]
     Active Substance: TRIMETAZIDINE DIHYDROCHLORIDE
     Dosage: 2 DOSAGE FORM, QD
     Route: 048
     Dates: start: 20181107, end: 20181108
  11. TERCIAN                            /00759301/ [Concomitant]
     Active Substance: CYAMEMAZINE
     Dosage: 100 MILLIGRAM, QD
     Route: 048
     Dates: start: 20181108, end: 20181108

REACTIONS (1)
  - Loss of consciousness [Recovered/Resolved]

NARRATIVE: CASE EVENT DATE: 20181109
